FAERS Safety Report 4753953-6 (Version None)
Quarter: 2005Q3

REPORT INFORMATION
  Report Type: 
  Country: None (occurrence: None)
  Receive Date: 20050825
  Receipt Date: 20050815
  Transmission Date: 20060218
  Serious: Yes (Death)
  Sender: FDA-Public Use
  Company Number: 12061

PATIENT

DRUGS (3)
  1. PACLITAXEL [Suspect]
     Indication: TRANSITIONAL CELL CARCINOMA
     Dosage: 200 MG/M2 PER_CYCLE IV
     Route: 042
  2. CARBOPLATIN [Suspect]
     Indication: TRANSITIONAL CELL CARCINOMA
     Dosage: 5 AUC PER_CYCLE IV
     Route: 042
  3. GEMCITABINE [Suspect]
     Indication: TRANSITIONAL CELL CARCINOMA
     Dosage: 1000 MG/M2 OTH IV
     Route: 042

REACTIONS (2)
  - IATROGENIC INJURY [None]
  - SEPSIS [None]
